FAERS Safety Report 4750072-X (Version None)
Quarter: 2005Q3

REPORT INFORMATION
  Report Type: 
  Country: None (occurrence: None)
  Receive Date: 20050822
  Receipt Date: 20050804
  Transmission Date: 20060218
  Serious: Yes (Other)
  Sender: FDA-Public Use
  Company Number: 2005-BP-13417RO

PATIENT
  Age: 66 Year
  Sex: Female

DRUGS (1)
  1. METHOTREXATE [Suspect]
     Indication: RHEUMATOID ARTHRITIS
     Dosage: 2.5 MG (THREE TIME PER WEEK (2.5 MG, 3 IN 1 WK), PO
     Route: 048

REACTIONS (8)
  - BLINDNESS [None]
  - BLOOD FOLATE DECREASED [None]
  - COLOUR BLINDNESS [None]
  - HAEMOGLOBIN DECREASED [None]
  - LABORATORY TEST ABNORMAL [None]
  - MEAN CELL VOLUME INCREASED [None]
  - SCOTOMA [None]
  - VISUAL EVOKED POTENTIALS ABNORMAL [None]
